FAERS Safety Report 7644885-4 (Version None)
Quarter: 2011Q3

REPORT INFORMATION
  Report Type: 
  Country: None (occurrence: None)
  Receive Date: 20110725
  Receipt Date: 20110708
  Transmission Date: 20111222
  Serious: Yes (Life-Threatening, Hospitalization)
  Sender: FDA-Public Use
  Company Number: US-20110006

PATIENT
  Age: 83 Year
  Sex: Male

DRUGS (9)
  1. SPINEPHRINE [Concomitant]
  2. LIDOCAINE [Concomitant]
  3. ATROPINE [Concomitant]
  4. VASOPRESSINE [Concomitant]
  5. HEXABRIX [Suspect]
     Indication: CATHETERISATION CARDIAC
     Dates: start: 20110708, end: 20110708
  6. SODIUM CHLORIDE [Concomitant]
  7. NITRO IC (NITROGLYCERINE) [Concomitant]
  8. METOPROLOL TARTRATE [Concomitant]
  9. SODIUM BICARBONATE [Concomitant]

REACTIONS (1)
  - LOSS OF CONSCIOUSNESS [None]
